FAERS Safety Report 15414613 (Version 1)
Quarter: 2018Q3

REPORT INFORMATION
  Report Type: Spontaneous
  Country: FI (occurrence: FI)
  Receive Date: 20180921
  Receipt Date: 20180921
  Transmission Date: 20181010
  Serious: Yes (Hospitalization)
  Sender: FDA-Public Use
  Company Number: FI-ASTRAZENECA-2018SF18051

PATIENT
  Age: 61 Year
  Sex: Male

DRUGS (8)
  1. FORXIGA [Suspect]
     Active Substance: DAPAGLIFLOZIN
     Indication: DIABETES MELLITUS
     Route: 048
     Dates: start: 20170816, end: 20180613
  2. VENLAFAXINE [Concomitant]
     Active Substance: VENLAFAXINE HYDROCHLORIDE
     Dosage: 225,MG,DAILY
     Route: 048
  3. HYDREX SEMI [Concomitant]
     Dosage: 25,MG,DAILY
     Route: 048
  4. PRATSIOL [Concomitant]
     Dosage: 3,MG,DAILY
     Route: 048
  5. CARDACE [Concomitant]
     Active Substance: RAMIPRIL
     Dosage: 10,MG,DAILY
     Route: 048
  6. NITROGLYCERIN ORION [Concomitant]
  7. AMLODIPINE [Concomitant]
     Active Substance: AMLODIPINE BESYLATE
     Dosage: 10,MG,DAILY
     Route: 048
  8. DIFORMIN RETARD [Concomitant]
     Active Substance: METFORMIN HYDROCHLORIDE
     Dosage: 3,G,DAILY
     Route: 048

REACTIONS (2)
  - Balanitis candida [Not Recovered/Not Resolved]
  - Phimosis [Not Recovered/Not Resolved]

NARRATIVE: CASE EVENT DATE: 20180518
